FAERS Safety Report 22096582 (Version 1)
Quarter: 2023Q1

REPORT INFORMATION
  Report Type: Spontaneous
  Country: US (occurrence: None)
  Receive Date: 20230315
  Receipt Date: 20230315
  Transmission Date: 20230418
  Serious: Yes (Other)
  Sender: FDA-Public Use
  Company Number: US-ROCHE-3306328

PATIENT
  Sex: Female

DRUGS (5)
  1. XOLAIR [Suspect]
     Active Substance: OMALIZUMAB
     Indication: Mast cell activation syndrome
     Dosage: 2 SHOTS IN ARM
     Route: 065
  2. XOLAIR [Suspect]
     Active Substance: OMALIZUMAB
     Indication: Asthma
  3. GABAPENTIN [Concomitant]
     Active Substance: GABAPENTIN
  4. CORLANOR [Concomitant]
     Active Substance: IVABRADINE HYDROCHLORIDE
  5. BENADRYL [Concomitant]
     Active Substance: DIPHENHYDRAMINE HYDROCHLORIDE

REACTIONS (8)
  - Skin burning sensation [Unknown]
  - Burning sensation [Unknown]
  - Alopecia [Unknown]
  - Neuralgia [Unknown]
  - Pain [Unknown]
  - Herpes zoster [Unknown]
  - Bone tuberculosis [Unknown]
  - Off label use [Unknown]
